FAERS Safety Report 24649560 (Version 3)
Quarter: 2025Q1

REPORT INFORMATION
  Report Type: Report from Study
  Country: US (occurrence: US)
  Receive Date: 20241121
  Receipt Date: 20250102
  Transmission Date: 20250408
  Serious: Yes (Hospitalization, Other)
  Sender: JAZZ
  Company Number: US-JAZZ PHARMACEUTICALS-2024-US-020308

PATIENT
  Age: 27 Year
  Sex: Female
  Weight: 78.5 kg

DRUGS (3)
  1. XYWAV [Suspect]
     Active Substance: CALCIUM OXYBATE\MAGNESIUM OXYBATE\POTASSIUM OXYBATE\SODIUM OXYBATE
     Indication: Hypersomnia
     Dosage: 3.5 GRAM, QD
     Route: 048
     Dates: start: 20241105
  2. XYWAV [Suspect]
     Active Substance: CALCIUM OXYBATE\MAGNESIUM OXYBATE\POTASSIUM OXYBATE\SODIUM OXYBATE
     Indication: Somnolence
     Dosage: 4 GRAM, QD
     Route: 048
  3. KETAMINE [Concomitant]
     Active Substance: KETAMINE
     Indication: Mental disorder

REACTIONS (7)
  - Myelopathy [Unknown]
  - Vision blurred [Recovered/Resolved]
  - Nausea [Recovered/Resolved]
  - Terminal insomnia [Unknown]
  - Depression [Unknown]
  - Urinary retention postoperative [Unknown]
  - Product administration interrupted [Unknown]

NARRATIVE: CASE EVENT DATE: 20241105
